FAERS Safety Report 6131182-1 (Version None)
Quarter: 2009Q1

REPORT INFORMATION
  Report Type: 
  Country: None (occurrence: None)
  Receive Date: 20090325
  Receipt Date: 20090317
  Transmission Date: 20090719
  Serious: Yes (Hospitalization)
  Sender: FDA-Public Use
  Company Number: JP-ASTRAZENECA-2009AP02036

PATIENT
  Age: 70 Year
  Sex: Male

DRUGS (2)
  1. XYLOCAINE [Suspect]
     Indication: EPIDURAL TEST DOSE
     Route: 008
  2. ANAPEINE INJECTION [Suspect]
     Indication: EPIDURAL ANAESTHESIA
     Route: 008

REACTIONS (1)
  - MONOPLEGIA [None]
